FAERS Safety Report 12832190 (Version 1)
Quarter: 2016Q4

REPORT INFORMATION
  Report Type: Spontaneous
  Country: CY (occurrence: CY)
  Receive Date: 20161010
  Receipt Date: 20161010
  Transmission Date: 20170207
  Serious: Yes (Other)
  Sender: FDA-Public Use
  Company Number: CY-BIOGEN-2016BI00302438

PATIENT
  Age: 69 Year
  Sex: Female

DRUGS (2)
  1. TRILEPTAL [Concomitant]
     Active Substance: OXCARBAZEPINE
     Indication: PRODUCT USED FOR UNKNOWN INDICATION
     Route: 065
     Dates: start: 2004
  2. AVONEX [Suspect]
     Active Substance: INTERFERON BETA-1A
     Indication: MULTIPLE SCLEROSIS
     Route: 030
     Dates: start: 1997, end: 20150310

REACTIONS (1)
  - Acute kidney injury [Recovered/Resolved]

NARRATIVE: CASE EVENT DATE: 20150309
